FAERS Safety Report 25237650 (Version 1)
Quarter: 2025Q2

REPORT INFORMATION
  Report Type: Spontaneous
  Country: US (occurrence: US)
  Receive Date: 20250425
  Receipt Date: 20250425
  Transmission Date: 20250717
  Serious: No
  Sender: UROGEN PHARMA
  Company Number: US-UROGEN PHARMA LTD.-2025-UGN-000040

PATIENT

DRUGS (6)
  1. JELMYTO [Suspect]
     Active Substance: MITOMYCIN
     Indication: Transitional cell cancer of the renal pelvis and ureter
     Dosage: UNK, ONCE A WEEK,(INSTILLATION)
  2. JELMYTO [Suspect]
     Active Substance: MITOMYCIN
     Dosage: UNK, ONCE A WEEK,(INSTILLATION)
  3. JELMYTO [Suspect]
     Active Substance: MITOMYCIN
     Dosage: UNK, ONCE A WEEK,(INSTILLATION)
  4. JELMYTO [Suspect]
     Active Substance: MITOMYCIN
     Dosage: UNK, ONCE A WEEK,(INSTILLATION)
  5. JELMYTO [Suspect]
     Active Substance: MITOMYCIN
     Dosage: UNK, ONCE A WEEK,(INSTILLATION)
  6. JELMYTO [Suspect]
     Active Substance: MITOMYCIN
     Dosage: UNK, ONCE A WEEK,(INSTILLATION)

REACTIONS (1)
  - Therapy partial responder [Unknown]
